FAERS Safety Report 7267615-7 (Version None)
Quarter: 2011Q1

REPORT INFORMATION
  Report Type: 
  Country: None (occurrence: None)
  Receive Date: 20110121
  Receipt Date: 20110106
  Transmission Date: 20110831
  Serious: Yes (Other)
  Sender: FDA-Public Use
  Company Number: AUR-APL-2010-02456

PATIENT
  Age: 49 Year
  Sex: Female

DRUGS (6)
  1. AMISULPRIDE [Suspect]
     Indication: SCHIZOPHRENIA
     Dates: end: 20100801
  2. RAMIPRIL [Concomitant]
  3. PAROXETINE HCL [Concomitant]
  4. LAMOTRIGINE [Suspect]
     Indication: SCHIZOPHRENIA
     Dates: end: 20100801
  5. TEMAZEPAM [Concomitant]
  6. CLOZARIL [Suspect]
     Indication: SCHIZOPHRENIA
     Dosage: 600MG - ORAL
     Route: 048
     Dates: start: 20050207

REACTIONS (8)
  - GENERAL PHYSICAL HEALTH DETERIORATION [None]
  - MENTAL IMPAIRMENT [None]
  - WHITE BLOOD CELL COUNT DECREASED [None]
  - NEUTROPHIL COUNT INCREASED [None]
  - BREAST ABSCESS [None]
  - PLATELET COUNT DECREASED [None]
  - BREAST CANCER FEMALE [None]
  - METASTASES TO SPINE [None]
